FAERS Safety Report 24965014 (Version 1)
Quarter: 2025Q1

REPORT INFORMATION
  Report Type: Spontaneous
  Country: US (occurrence: None)
  Receive Date: 20250213
  Receipt Date: 20250213
  Transmission Date: 20250408
  Serious: Yes (Hospitalization)
  Sender: FDA-CTU
  Company Number: None

PATIENT
  Age: 45 Year
  Sex: Female
  Weight: 115.8 kg

DRUGS (3)
  1. CARBOPLATIN [Suspect]
     Active Substance: CARBOPLATIN
     Dates: end: 20210325
  2. LETROZOLE [Suspect]
     Active Substance: LETROZOLE
     Dates: end: 20241227
  3. PACLITAXEL [Suspect]
     Active Substance: PACLITAXEL
     Dates: end: 20210325

REACTIONS (2)
  - Left ventricular dysfunction [None]
  - Cardiac failure acute [None]

NARRATIVE: CASE EVENT DATE: 20241231
